FAERS Safety Report 23124061 (Version 1)
Quarter: 2023Q4

REPORT INFORMATION
  Report Type: Report from Study
  Country: CR (occurrence: CR)
  Receive Date: 20231030
  Receipt Date: 20231030
  Transmission Date: 20240110
  Serious: Yes (Disabling)
  Sender: FDA-Public Use
  Company Number: CR-002147023-NVSC2023CR223513

PATIENT
  Sex: Female

DRUGS (2)
  1. EXFORGE [Suspect]
     Active Substance: AMLODIPINE BESYLATE\VALSARTAN
     Indication: Hypertension
     Dosage: 10/320 MG, QD
     Route: 048
     Dates: start: 202307, end: 202309
  2. EXFORGE [Suspect]
     Active Substance: AMLODIPINE BESYLATE\VALSARTAN
     Dosage: 10/320 MG
     Route: 065

REACTIONS (5)
  - Inflammation [Recovered/Resolved with Sequelae]
  - Vascular pain [Unknown]
  - Haematoma [Unknown]
  - Gait inability [Unknown]
  - Capillary fragility [Unknown]
